FAERS Safety Report 8511617-7 (Version None)
Quarter: 2012Q3

REPORT INFORMATION
  Report Type: 
  Country: None (occurrence: None)
  Receive Date: 20120716
  Receipt Date: 20120713
  Transmission Date: 20120928
  Serious: Yes (Other)
  Sender: FDA-Public Use
  Company Number: US-PFIZER INC-2012169704

PATIENT
  Sex: Female
  Weight: 90.703 kg

DRUGS (4)
  1. EFFEXOR [Suspect]
     Indication: PANIC ATTACK
     Dosage: 150 MG, DAILY
  2. PRAVASTATIN [Concomitant]
     Indication: BLOOD CHOLESTEROL ABNORMAL
     Dosage: UNK
  3. METFORMIN [Concomitant]
     Indication: BLOOD GLUCOSE ABNORMAL
     Dosage: UNK
  4. MOBIC [Concomitant]
     Dosage: UNK

REACTIONS (1)
  - WEIGHT INCREASED [None]
